FAERS Safety Report 6990576-2 (Version None)
Quarter: 2010Q3

REPORT INFORMATION
  Report Type: 
  Country: None (occurrence: None)
  Receive Date: 20100916
  Receipt Date: 20100705
  Transmission Date: 20110219
  Serious: No
  Sender: FDA-Public Use
  Company Number: JP-PFIZER INC-2010083256

PATIENT
  Age: 86 Year
  Sex: Male

DRUGS (5)
  1. LYRICA [Suspect]
     Dosage: 75 MG, 2X/DAY
     Route: 048
     Dates: start: 20100703, end: 20100704
  2. ARTIST [Concomitant]
     Route: 048
  3. ASPIRIN [Concomitant]
     Route: 048
  4. TAMSULOSIN HCL [Concomitant]
     Route: 048
  5. LASIX [Concomitant]

REACTIONS (1)
  - TREMOR [None]
